FAERS Safety Report 21730749 (Version 1)
Quarter: 2022Q4

REPORT INFORMATION
  Report Type: Spontaneous
  Country: ES (occurrence: ES)
  Receive Date: 20221215
  Receipt Date: 20221215
  Transmission Date: 20230113
  Serious: Yes (Hospitalization, Other)
  Sender: FDA-Public Use
  Company Number: ES-STERISCIENCE B.V.-2022-ST-000242

PATIENT
  Age: 68 Year
  Sex: Male

DRUGS (7)
  1. MIDAZOLAM [Suspect]
     Active Substance: MIDAZOLAM
     Indication: Sedative therapy
     Dosage: 2 MILLIGRAM
     Route: 042
  2. BUPIVACAINE [Suspect]
     Active Substance: BUPIVACAINE
     Indication: Induction of anaesthesia
     Dosage: DOSE: 2ML OF 0.25%
     Route: 065
  3. BUPIVACAINE [Suspect]
     Active Substance: BUPIVACAINE
     Dosage: 8 MILLILITER
     Route: 065
  4. EPINEPHRINE [Suspect]
     Active Substance: EPINEPHRINE
     Indication: Vasopressive therapy
     Dosage: 5MCG/ML
     Route: 065
  5. LEVOBUPIVACAINE [Suspect]
     Active Substance: LEVOBUPIVACAINE
     Indication: Induction of anaesthesia
     Dosage: DOSE: 20ML OF 0.125%
     Route: 065
  6. LEVOBUPIVACAINE [Suspect]
     Active Substance: LEVOBUPIVACAINE
     Dosage: DOSE: 30MG OF 0.5% ADMINISTERED FRACTIONALLY.
     Route: 065
  7. FENTANYL [Suspect]
     Active Substance: FENTANYL
     Indication: Induction of anaesthesia
     Dosage: 100 MICROGRAM
     Route: 065

REACTIONS (1)
  - Brown-Sequard syndrome [None]
